FAERS Safety Report 4805792-5 (Version None)
Quarter: 2005Q4

REPORT INFORMATION
  Report Type: 
  Country: None (occurrence: None)
  Receive Date: 20051018
  Receipt Date: 20051004
  Transmission Date: 20060501
  Serious: Yes (Hospitalization)
  Sender: FDA-Public Use
  Company Number: US-2005-020598

PATIENT
  Age: 59 Year
  Sex: Female

DRUGS (1)
  1. BETASERON (INTERFERON BETA - 1B) INJECTION, 250UG [Suspect]
     Indication: RELAPSING-REMITTING MULTIPLE SCLEROSIS
     Dosage: 8 MIU, EVERY 2D, SUBCUTANEOUS
     Route: 058
     Dates: start: 20020220

REACTIONS (4)
  - ABDOMINAL PAIN [None]
  - APHAGIA [None]
  - DECREASED APPETITE [None]
  - WEIGHT DECREASED [None]
